FAERS Safety Report 15160398 (Version 3)
Quarter: 2018Q4

REPORT INFORMATION
  Report Type: Spontaneous
  Country: None (occurrence: US)
  Receive Date: 20180718
  Receipt Date: 20181221
  Transmission Date: 20190204
  Serious: Yes (Other)
  Sender: FDA-Public Use
  Company Number: US-GLAXOSMITHKLINE-US2018125400

PATIENT
  Age: 65 Year
  Sex: Male

DRUGS (2)
  1. AIMOVIG [Concomitant]
     Active Substance: ERENUMAB-AOOE
     Indication: PRODUCT USED FOR UNKNOWN INDICATION
     Dosage: UNK
  2. EXCEDRIN EXTRA STRENGTH [Suspect]
     Active Substance: ACETAMINOPHEN\ASPIRIN\CAFFEINE
     Indication: PRODUCT USED FOR UNKNOWN INDICATION

REACTIONS (29)
  - Sinusitis [Unknown]
  - Amnesia [Unknown]
  - Throat irritation [Unknown]
  - Ill-defined disorder [Unknown]
  - Medication overuse headache [Unknown]
  - Product use issue [Unknown]
  - Cough [Unknown]
  - Insomnia [Unknown]
  - Gastric disorder [Unknown]
  - Drug dependence [Unknown]
  - Pain [Not Recovered/Not Resolved]
  - Disturbance in attention [Unknown]
  - Anger [Unknown]
  - Depression [Unknown]
  - Hyperacusis [Unknown]
  - Arthralgia [Unknown]
  - Drug ineffective [Unknown]
  - Gastrooesophageal reflux disease [Unknown]
  - Disability [Unknown]
  - Nervous system disorder [Unknown]
  - Overdose [Unknown]
  - Tension [Unknown]
  - Emergency care examination [Unknown]
  - Adverse drug reaction [Unknown]
  - Pruritus [Unknown]
  - Ear discomfort [Unknown]
  - Unevaluable event [Unknown]
  - Inappropriate schedule of product administration [Unknown]
  - Anxiety [Unknown]
